FAERS Safety Report 10844990 (Version 1)
Quarter: 2015Q1

REPORT INFORMATION
  Report Type: Report from Study
  Country: US (occurrence: US)
  Receive Date: 20150220
  Receipt Date: 20150220
  Transmission Date: 20150721
  Serious: Yes (Hospitalization)
  Sender: FDA-Public Use
  Company Number: US-ABBVIE-15K-163-1329483-00

PATIENT
  Sex: Male

DRUGS (1)
  1. HUMIRA [Suspect]
     Active Substance: ADALIMUMAB
     Indication: CROHN^S DISEASE
     Route: 065
     Dates: start: 20140905

REACTIONS (4)
  - Dehydration [Recovering/Resolving]
  - Gastric infection [Recovering/Resolving]
  - Frequent bowel movements [Unknown]
  - Vomiting [Unknown]

NARRATIVE: CASE EVENT DATE: 2014
